FAERS Safety Report 15316471 (Version 2)
Quarter: 2018Q3

REPORT INFORMATION
  Report Type: Spontaneous
  Country: JP (occurrence: JP)
  Receive Date: 20180824
  Receipt Date: 20180910
  Transmission Date: 20181010
  Serious: Yes (Life-Threatening)
  Sender: FDA-Public Use
  Company Number: JP-BEH-2018094229

PATIENT
  Age: 47 Year
  Sex: Male
  Weight: 66.6 kg

DRUGS (19)
  1. ALBUMINAR?5 [Suspect]
     Active Substance: ALBUMIN HUMAN
     Indication: HYPOVOLAEMIA
     Dosage: UNK
     Route: 065
  2. ALBUMINAR?5 [Suspect]
     Active Substance: ALBUMIN HUMAN
     Dosage: UNK
     Route: 065
  3. SALINE                             /00075401/ [Concomitant]
     Active Substance: SODIUM CHLORIDE
     Dosage: 500 ML, UNK
     Route: 065
     Dates: start: 20180817
  4. NICORANDIL [Concomitant]
     Active Substance: NICORANDIL
     Dosage: 48 MG, UNK
     Route: 065
     Dates: start: 20180817
  5. ALBUMIN [Concomitant]
     Active Substance: ALBUMIN HUMAN
     Route: 065
  6. BICANATE [Concomitant]
     Dosage: 4000 ML, UNK
     Route: 065
     Dates: start: 20180817
  7. ROCURONIUM BROMIDE. [Concomitant]
     Active Substance: ROCURONIUM BROMIDE
     Dosage: 50 MG, UNK
     Route: 065
     Dates: start: 20180817
  8. NORADRENALINE                      /00127501/ [Concomitant]
     Active Substance: NOREPINEPHRINE
     Indication: BLOOD PRESSURE DECREASED
     Dosage: 3 MG, UNK
     Route: 042
     Dates: start: 20180817
  9. RED BLOOD CELLS, CONCENTRATED [Concomitant]
     Active Substance: HUMAN RED BLOOD CELL
     Dosage: 560 ML, UNK
     Route: 065
     Dates: start: 20180813, end: 20180820
  10. ALBUMINAR?5 [Suspect]
     Active Substance: ALBUMIN HUMAN
     Dosage: UNK
     Route: 065
  11. OXYGEN. [Concomitant]
     Active Substance: OXYGEN
     Dosage: 575 L, UNK
     Route: 065
     Dates: start: 20180817
  12. HEPARIN [Concomitant]
     Active Substance: HEPARIN SODIUM
     Indication: ANTICOAGULANT THERAPY
     Dosage: 4000 IU, UNK
     Route: 042
     Dates: start: 20180817
  13. NEOSYNESIN                         /00116302/ [Concomitant]
     Dosage: 1 MG, UNK
     Route: 065
     Dates: start: 20180817
  14. ALBUMINAR?5 [Suspect]
     Active Substance: ALBUMIN HUMAN
     Indication: HYPOALBUMINAEMIA
     Dosage: 230 ML, UNK
     Route: 042
     Dates: start: 20180817, end: 20180817
  15. EPHEDRIN [Concomitant]
     Active Substance: EPHEDRINE HYDROCHLORIDE
     Dosage: 40 MG, UNK
     Route: 065
     Dates: start: 20180817
  16. SUPRANE [Concomitant]
     Active Substance: DESFLURANE
     Indication: GENERAL ANAESTHESIA
     Dosage: 280.16 ML, UNK
     Route: 055
     Dates: start: 20180817
  17. FENTANYL. [Concomitant]
     Active Substance: FENTANYL
     Indication: GENERAL ANAESTHESIA
     Dosage: 0.1 UNK, UNK
     Route: 042
     Dates: start: 20180817
  18. ISOTONIC SODIUM CHLORIDE SOLUTION [Concomitant]
     Active Substance: SODIUM CHLORIDE
     Dosage: 200 ML, UNK
     Route: 065
     Dates: start: 20180817
  19. BICARBON [Concomitant]
     Active Substance: SODIUM BICARBONATE
     Dosage: 500 ML, UNK
     Route: 065
     Dates: start: 20180817

REACTIONS (6)
  - Oxygen saturation decreased [Recovered/Resolved]
  - Electrocardiogram ST segment elevation [Unknown]
  - Anaphylactic shock [Unknown]
  - Blood pressure decreased [Recovered/Resolved]
  - Arteriospasm coronary [Unknown]
  - Myocardial ischaemia [Unknown]

NARRATIVE: CASE EVENT DATE: 20180817
